FAERS Safety Report 7071407-1 (Version None)
Quarter: 2010Q4

REPORT INFORMATION
  Report Type: 
  Country: None (occurrence: None)
  Receive Date: 20101029
  Receipt Date: 20100423
  Transmission Date: 20110411
  Serious: No
  Sender: FDA-Public Use
  Company Number: A0784410A

PATIENT
  Age: 57 Year
  Sex: Female
  Weight: 75.5 kg

DRUGS (1)
  1. ADVAIR DISKUS 100/50 [Suspect]
     Indication: PRODUCT USED FOR UNKNOWN INDICATION
     Route: 055
     Dates: start: 20070501, end: 20091001

REACTIONS (1)
  - CANDIDIASIS [None]
